FAERS Safety Report 5830198-X (Version None)
Quarter: 2008Q3

REPORT INFORMATION
  Report Type: 
  Country: None (occurrence: None)
  Receive Date: 20080801
  Receipt Date: 20080725
  Transmission Date: 20090109
  Serious: Yes (Congenital Anomaly)
  Sender: FDA-Public Use
  Company Number: A0679843A

PATIENT
  Sex: Female
  Weight: 3.4 kg

DRUGS (10)
  1. PAXIL [Suspect]
     Indication: DEPRESSION
     Dosage: 20MG PER DAY
     Dates: start: 20030101, end: 20060101
  2. PAROXETINE HCL [Suspect]
     Indication: DEPRESSION
     Dates: start: 20040101, end: 20050101
  3. PROZAC [Concomitant]
     Indication: DEPRESSION
     Dosage: 20MG PER DAY
     Dates: start: 20050101
  4. MULTI-VITAMIN [Concomitant]
  5. TYLENOL [Concomitant]
  6. VITAMIN TAB [Concomitant]
  7. INSULIN [Concomitant]
  8. PHENERGAN HCL [Concomitant]
  9. MACROBID [Concomitant]
  10. ZOFRAN [Concomitant]

REACTIONS (6)
  - ATRIAL SEPTAL DEFECT [None]
  - CARDIAC MURMUR [None]
  - DRUG EXPOSURE DURING PREGNANCY [None]
  - PILONIDAL CYST CONGENITAL [None]
  - PULMONARY VALVE STENOSIS [None]
  - STRABISMUS [None]
